FAERS Safety Report 24677773 (Version 3)
Quarter: 2024Q4

REPORT INFORMATION
  Report Type: Report from Study
  Country: SA (occurrence: SA)
  Receive Date: 20241129
  Receipt Date: 20241227
  Transmission Date: 20250115
  Serious: Yes (Other)
  Sender: NOVARTIS
  Company Number: SA-002147023-NVSC2024SA228114

PATIENT
  Age: 49 Year
  Sex: Male

DRUGS (1)
  1. LEQVIO [Suspect]
     Active Substance: INCLISIRAN SODIUM
     Indication: Hypercholesterolaemia
     Dosage: 284 MG, OTHER (ONCE EVERY SIX MONTHS)
     Route: 058
     Dates: start: 20230926

REACTIONS (14)
  - Rash [Not Recovered/Not Resolved]
  - Pruritus [Unknown]
  - Skin exfoliation [Unknown]
  - Erythema [Unknown]
  - Feeling hot [Unknown]
  - Vision blurred [Recovered/Resolved with Sequelae]
  - Prostatomegaly [Recovering/Resolving]
  - Peripheral swelling [Not Recovered/Not Resolved]
  - Ear discomfort [Recovered/Resolved]
  - Lacrimation increased [Unknown]
  - Blood glucose abnormal [Recovering/Resolving]
  - Toothache [Unknown]
  - Eczema [Not Recovered/Not Resolved]
  - Dizziness [Unknown]

NARRATIVE: CASE EVENT DATE: 20240626
